FAERS Safety Report 4651094-X (Version None)
Quarter: 2005Q2

REPORT INFORMATION
  Report Type: 
  Country: None (occurrence: None)
  Receive Date: 20050503
  Receipt Date: 20050422
  Transmission Date: 20051028
  Serious: Yes (Life-Threatening, Hospitalization, Disabling)
  Sender: FDA-Public Use
  Company Number: BE-ROCHE-402713

PATIENT
  Age: 35 Year
  Sex: Male
  Weight: 104 kg

DRUGS (3)
  1. FUZEON [Suspect]
     Route: 058
     Dates: start: 20011013
  2. SAQUINAVIR [Concomitant]
  3. NELFINAVIR [Concomitant]

REACTIONS (2)
  - INTERVERTEBRAL DISC PROTRUSION [None]
  - PANCREATITIS [None]
